FAERS Safety Report 9512285 (Version 1)
Quarter: 2013Q3

REPORT INFORMATION
  Report Type: Spontaneous
  Country: US (occurrence: US)
  Receive Date: 20130910
  Receipt Date: 20130910
  Transmission Date: 20140515
  Serious: No
  Sender: FDA-Public Use
  Company Number: -SAAVPROD-BMS14290084

PATIENT
  Age: 59 Year
  Sex: Male
  Weight: 80.72 kg

DRUGS (13)
  1. AVAPRO [Suspect]
     Indication: HYPERTENSION
     Route: 048
     Dates: start: 20030528
  2. GLUCOVANCE TABS [Suspect]
     Indication: DIABETES MELLITUS
     Dosage: 1 DOSAGE FORM= 2.5/500MG.
     Route: 048
     Dates: start: 20030528
  3. METFORMIN HCL [Suspect]
  4. LIPITOR [Suspect]
  5. LANTUS [Suspect]
     Dosage: 1 DOSAGE FORM= 54 UNITS ALSO ON 64UNITS
  6. PROTONIX [Suspect]
  7. ASPIRIN [Suspect]
  8. LOVASTATIN [Suspect]
     Dosage: 2TAB IN NIGHT
  9. LYRICA [Suspect]
  10. AVACOR PHISICIANS FORMULATION EXTRA STRENGTH FOR MEN [Suspect]
  11. MULTIVITAMIN [Suspect]
  12. LORATADINE [Concomitant]
  13. NAPROXEN [Concomitant]

REACTIONS (3)
  - Photosensitivity reaction [Unknown]
  - Feeling hot [Unknown]
  - Dyspepsia [Unknown]
